FAERS Safety Report 10916312 (Version 1)
Quarter: 2015Q1

REPORT INFORMATION
  Report Type: Spontaneous
  Country: US (occurrence: None)
  Receive Date: 20150311
  Receipt Date: 20150311
  Transmission Date: 20150721
  Serious: No
  Sender: FDA-Public Use
  Company Number: None

PATIENT
  Age: 68 Year
  Sex: Male
  Weight: 81.5 kg

DRUGS (1)
  1. WARFARIN [Suspect]
     Active Substance: WARFARIN
     Indication: PULMONARY EMBOLISM
     Dates: start: 20141205, end: 20150218

REACTIONS (6)
  - Hypotension [None]
  - Upper gastrointestinal haemorrhage [None]
  - Peptic ulcer [None]
  - Helicobacter test positive [None]
  - Dizziness [None]
  - Tachycardia [None]

NARRATIVE: CASE EVENT DATE: 20150218
